FAERS Safety Report 12740023 (Version 4)
Quarter: 2016Q4

REPORT INFORMATION
  Report Type: Report from Study
  Country: None (occurrence: IL)
  Receive Date: 20160913
  Receipt Date: 20161027
  Transmission Date: 20170207
  Serious: Yes (Death, Hospitalization, Other)
  Sender: FDA-Public Use
  Company Number: IL-ABBVIE-16P-082-1713622-00

PATIENT
  Age: 74 Year
  Sex: Male

DRUGS (6)
  1. VENETOCLAX [Suspect]
     Active Substance: VENETOCLAX
     Dosage: 2 TIMES 7 DAYS
     Route: 048
     Dates: end: 20160828
  2. VENETOCLAX [Suspect]
     Active Substance: VENETOCLAX
     Indication: CHRONIC LYMPHOCYTIC LEUKAEMIA
     Dosage: START PACK: 4 TIMES 7 DAYS
     Route: 048
     Dates: start: 20160817
  3. BUTRANS [Concomitant]
     Active Substance: BUPRENORPHINE
     Indication: BONE PAIN
     Route: 062
     Dates: start: 201607, end: 20160909
  4. ALLORIL [Concomitant]
     Indication: HYPERURICAEMIA
     Route: 048
     Dates: start: 20160815, end: 20160901
  5. VENETOCLAX [Suspect]
     Active Substance: VENETOCLAX
     Route: 048
  6. DUODART [Concomitant]
     Active Substance: DUTASTERIDE\TAMSULOSIN
     Indication: BENIGN PROSTATIC HYPERPLASIA
     Route: 048
     Dates: start: 20160406, end: 20160909

REACTIONS (10)
  - Tumour lysis syndrome [Recovered/Resolved]
  - Oedema [Unknown]
  - Pyrexia [Unknown]
  - Death [Fatal]
  - Hepatic function abnormal [Unknown]
  - Blood creatinine increased [Unknown]
  - Septic shock [Fatal]
  - Renal failure [Fatal]
  - Platelet count decreased [Unknown]
  - Renal impairment [Not Recovered/Not Resolved]

NARRATIVE: CASE EVENT DATE: 20160824
